FAERS Safety Report 4386899-6 (Version None)
Quarter: 2004Q2

REPORT INFORMATION
  Report Type: 
  Country: None (occurrence: None)
  Receive Date: 20040625
  Receipt Date: 20040615
  Transmission Date: 20050107
  Serious: Yes (Other)
  Sender: FDA-Public Use
  Company Number: 2004219677GB

PATIENT
  Age: 52 Year
  Sex: Female
  Weight: 60 kg

DRUGS (2)
  1. GENOTROPIN [Suspect]
     Indication: MENOPAUSAL SYMPTOMS
     Dosage: 5400 UG, QD
     Dates: start: 20040504, end: 20040604
  2. AMITRIPTYLINE HCL [Concomitant]

REACTIONS (1)
  - PANCREATITIS RELAPSING [None]
